FAERS Safety Report 7901729-0 (Version None)
Quarter: 2011Q4

REPORT INFORMATION
  Report Type: 
  Country: None (occurrence: None)
  Receive Date: 20111108
  Receipt Date: 20111031
  Transmission Date: 20120403
  Serious: Yes (Other)
  Sender: FDA-Public Use
  Company Number: CHPA2011US14663

PATIENT
  Sex: Female

DRUGS (1)
  1. BENEFIBER W/ WHEAT DEXTRIN [Suspect]
     Indication: SUPPLEMENTATION THERAPY
     Dosage: 0.5 TSP, ONCE/SINGLE
     Route: 048
     Dates: start: 20111020, end: 20111020

REACTIONS (6)
  - EPILEPSY [None]
  - CHEST DISCOMFORT [None]
  - THROAT TIGHTNESS [None]
  - HYPERSENSITIVITY [None]
  - PHARYNGEAL OEDEMA [None]
  - UNDERDOSE [None]
